FAERS Safety Report 11390058 (Version 2)
Quarter: 2015Q3

REPORT INFORMATION
  Report Type: Report from Study
  Country: JP (occurrence: JP)
  Receive Date: 20150818
  Receipt Date: 20150915
  Transmission Date: 20151125
  Serious: Yes (Life-Threatening)
  Sender: FDA-Public Use
  Company Number: JP-ROCHE-1621784

PATIENT
  Age: 79 Year
  Sex: Male

DRUGS (30)
  1. WARFARIN [Concomitant]
     Active Substance: WARFARIN
     Route: 048
     Dates: start: 20130520
  2. DIART [Concomitant]
     Active Substance: AZOSEMIDE
     Indication: DIABETIC NEPHROPATHY
     Route: 048
     Dates: end: 20150208
  3. DIGOSIN [Concomitant]
     Active Substance: DIGOXIN
     Route: 048
     Dates: end: 20150208
  4. TEPRENONE [Concomitant]
     Active Substance: TEPRENONE
     Route: 048
     Dates: end: 20140120
  5. METHOXY POLYETHYLENE GLYCOL-EPOETIN BETA [Suspect]
     Active Substance: METHOXY POLYETHYLENE GLYCOL-EPOETIN BETA
     Indication: NEPHROGENIC ANAEMIA
     Route: 058
     Dates: start: 20131118, end: 20131118
  6. GLIBENCLAMIDE [Concomitant]
     Active Substance: GLYBURIDE
     Indication: DIABETIC NEPHROPATHY
     Route: 048
     Dates: end: 20140825
  7. LASIX [Concomitant]
     Active Substance: FUROSEMIDE
     Indication: DIABETIC NEPHROPATHY
     Route: 048
     Dates: end: 20130930
  8. MEVALOTIN [Concomitant]
     Active Substance: PRAVASTATIN SODIUM
     Route: 048
  9. ZYLORIC [Concomitant]
     Active Substance: ALLOPURINOL
     Indication: DIABETIC NEPHROPATHY
     Route: 048
  10. KAYEXALATE [Concomitant]
     Active Substance: SODIUM POLYSTYRENE SULFONATE
     Route: 048
     Dates: start: 20130520, end: 20130617
  11. MICARDIS [Concomitant]
     Active Substance: TELMISARTAN
     Route: 048
     Dates: start: 20131118, end: 20150208
  12. MAINTATE [Concomitant]
     Active Substance: BISOPROLOL FUMARATE
     Route: 048
     Dates: start: 20150413
  13. METHOXY POLYETHYLENE GLYCOL-EPOETIN BETA [Suspect]
     Active Substance: METHOXY POLYETHYLENE GLYCOL-EPOETIN BETA
     Indication: NEPHROGENIC ANAEMIA
     Route: 058
     Dates: start: 20140120, end: 20140303
  14. METHOXY POLYETHYLENE GLYCOL-EPOETIN BETA [Suspect]
     Active Substance: METHOXY POLYETHYLENE GLYCOL-EPOETIN BETA
     Indication: NEPHROGENIC ANAEMIA
     Route: 058
     Dates: start: 20140714, end: 20141222
  15. GASTER [Concomitant]
     Active Substance: FAMOTIDINE
     Route: 048
     Dates: end: 20140602
  16. SIGMART [Concomitant]
     Active Substance: NICORANDIL
     Indication: PROPHYLAXIS
     Route: 048
     Dates: start: 20150413
  17. KAYEXALATE [Concomitant]
     Active Substance: SODIUM POLYSTYRENE SULFONATE
     Route: 048
     Dates: start: 20130819, end: 20150518
  18. GLIMICRON [Concomitant]
     Active Substance: GLICLAZIDE
     Indication: DIABETIC NEPHROPATHY
     Route: 048
     Dates: start: 20140825
  19. MICAMLO [Concomitant]
     Active Substance: AMLODIPINE BESYLATE\TELMISARTAN
     Route: 048
     Dates: start: 20150413
  20. METHOXY POLYETHYLENE GLYCOL-EPOETIN BETA [Suspect]
     Active Substance: METHOXY POLYETHYLENE GLYCOL-EPOETIN BETA
     Indication: NEPHROGENIC ANAEMIA
     Route: 058
     Dates: start: 20150105, end: 20150413
  21. ADALAT CC [Concomitant]
     Active Substance: NIFEDIPINE
     Route: 048
     Dates: end: 20150208
  22. EQUA [Concomitant]
     Active Substance: VILDAGLIPTIN
     Route: 048
     Dates: end: 20140714
  23. PARIET [Concomitant]
     Active Substance: RABEPRAZOLE SODIUM
     Indication: PROPHYLAXIS
     Route: 048
     Dates: start: 20140825
  24. METHOXY POLYETHYLENE GLYCOL-EPOETIN BETA [Suspect]
     Active Substance: METHOXY POLYETHYLENE GLYCOL-EPOETIN BETA
     Indication: NEPHROGENIC ANAEMIA
     Route: 058
     Dates: start: 20130520, end: 20130930
  25. METHOXY POLYETHYLENE GLYCOL-EPOETIN BETA [Suspect]
     Active Substance: METHOXY POLYETHYLENE GLYCOL-EPOETIN BETA
     Indication: NEPHROGENIC ANAEMIA
     Route: 058
     Dates: start: 20140421, end: 20140421
  26. METHOXY POLYETHYLENE GLYCOL-EPOETIN BETA [Suspect]
     Active Substance: METHOXY POLYETHYLENE GLYCOL-EPOETIN BETA
     Indication: NEPHROGENIC ANAEMIA
     Route: 058
     Dates: start: 20150518
  27. BAYASPIRIN [Concomitant]
     Active Substance: ASPIRIN
     Indication: PROPHYLAXIS
     Route: 048
     Dates: start: 20150413
  28. NORVASC [Concomitant]
     Active Substance: AMLODIPINE BESYLATE
     Route: 048
     Dates: end: 20150208
  29. LASIX [Concomitant]
     Active Substance: FUROSEMIDE
     Route: 048
     Dates: start: 20131001
  30. JANUVIA [Concomitant]
     Active Substance: SITAGLIPTIN PHOSPHATE
     Indication: DIABETIC NEPHROPATHY
     Route: 048
     Dates: start: 20150714

REACTIONS (1)
  - Myocardial infarction [Recovered/Resolved]

NARRATIVE: CASE EVENT DATE: 20150208
